FAERS Safety Report 8486377-9 (Version None)
Quarter: 2012Q3

REPORT INFORMATION
  Report Type: 
  Country: None (occurrence: None)
  Receive Date: 20120703
  Receipt Date: 20120622
  Transmission Date: 20120928
  Serious: Yes (Hospitalization)
  Sender: FDA-Public Use
  Company Number: FR-GLAXOSMITHKLINE-B0809993A

PATIENT
  Sex: Female

DRUGS (24)
  1. ZANTAC [Suspect]
     Indication: PREMEDICATION
     Route: 065
     Dates: start: 20120423
  2. KETOPROFEN [Suspect]
     Indication: PRODUCT USED FOR UNKNOWN INDICATION
     Route: 065
     Dates: start: 20120424
  3. ERYTHROMYCIN [Suspect]
     Indication: PRODUCT USED FOR UNKNOWN INDICATION
     Route: 065
     Dates: start: 20120425
  4. PRADAXA [Suspect]
     Indication: PRODUCT USED FOR UNKNOWN INDICATION
     Route: 065
     Dates: start: 20120425
  5. IPRATROPIUM BROMIDE [Concomitant]
     Route: 065
  6. PYOSTACINE [Suspect]
     Indication: PRODUCT USED FOR UNKNOWN INDICATION
     Route: 065
     Dates: start: 20120424
  7. CELEBREX [Suspect]
     Indication: PRODUCT USED FOR UNKNOWN INDICATION
     Route: 065
     Dates: start: 20120424
  8. OXYCONTIN [Suspect]
     Indication: PRODUCT USED FOR UNKNOWN INDICATION
     Route: 065
     Dates: start: 20120424
  9. ACUPAN [Suspect]
     Indication: PRODUCT USED FOR UNKNOWN INDICATION
     Route: 065
     Dates: start: 20120424
  10. PIASCLEDINE [Concomitant]
     Route: 065
  11. LEVOFLOXACIN [Concomitant]
     Route: 065
  12. ARIXTRA [Concomitant]
     Route: 065
  13. OMEPRAZOLE [Concomitant]
     Route: 065
  14. ACETAMINOPHEN [Concomitant]
     Route: 065
  15. XYZAL [Concomitant]
     Route: 065
  16. ONDANSETRON HCL [Suspect]
     Indication: PRODUCT USED FOR UNKNOWN INDICATION
     Route: 065
     Dates: start: 20120424
  17. LYRICA [Suspect]
     Indication: PRODUCT USED FOR UNKNOWN INDICATION
     Route: 065
     Dates: start: 20120424
  18. TERBUTALINE [Concomitant]
     Route: 065
  19. POLARAMINE [Concomitant]
     Route: 065
  20. ATARAX [Concomitant]
     Route: 065
  21. TRAMADOL HCL [Concomitant]
     Route: 065
  22. VANCOMYCIN [Suspect]
     Indication: PRODUCT USED FOR UNKNOWN INDICATION
     Route: 065
     Dates: start: 20120424
  23. ATARAX [Suspect]
     Indication: PREMEDICATION
     Route: 065
     Dates: start: 20120423
  24. OXYCODONE HCL [Suspect]
     Indication: PRODUCT USED FOR UNKNOWN INDICATION
     Route: 065
     Dates: start: 20120424

REACTIONS (9)
  - ACUTE GENERALISED EXANTHEMATOUS PUSTULOSIS [None]
  - ERYTHEMA [None]
  - INFLAMMATION [None]
  - CHOLESTASIS [None]
  - OEDEMA [None]
  - TOXIC EPIDERMAL NECROLYSIS [None]
  - SKIN DISORDER [None]
  - PYREXIA [None]
  - LIVER INJURY [None]
